FAERS Safety Report 8729639 (Version 2)
Quarter: 2012Q4

REPORT INFORMATION
  Report Type: Report from Study
  Country: JP (occurrence: JP)
  Receive Date: 20120817
  Receipt Date: 20121004
  Transmission Date: 20130627
  Serious: Yes (Hospitalization)
  Sender: FDA-Public Use
  Company Number: JP-BAYER-2012-081500

PATIENT
  Age: 66 Year
  Sex: Male
  Weight: 86 kg

DRUGS (9)
  1. SORAFENIB (RAF KINASE INHIBITOR) [Suspect]
     Indication: HEPATIC NEOPLASM MALIGNANT
     Dosage: 200 mg daily
     Dates: start: 20120525, end: 20120529
  2. SORAFENIB (RAF KINASE INHIBITOR) [Suspect]
     Indication: HEPATIC NEOPLASM MALIGNANT
     Dosage: 200 mg, QOD
     Dates: start: 20120529, end: 20120613
  3. SORAFENIB (RAF KINASE INHIBITOR) [Suspect]
     Indication: HEPATIC NEOPLASM MALIGNANT
     Dosage: 200 mg, QOD
     Dates: start: 20120613, end: 20120713
  4. LACTULOSE [Concomitant]
     Dosage: Daily dose 40 ml
     Route: 048
  5. LIVACT [Concomitant]
     Dosage: Daily dose 12.45 g
     Route: 048
  6. GLAKAY [Concomitant]
     Dosage: Daily dose 45 mg
     Route: 048
  7. ARTIST [Concomitant]
     Dosage: Daily dose 10 mg
     Route: 048
  8. OMEPRAL [Concomitant]
     Dosage: Daily dose 20 mg
     Route: 048
  9. PYDOXAL [Concomitant]
     Dosage: Daily dose 60 mg
     Route: 048

REACTIONS (2)
  - Hepatic function abnormal [Recovering/Resolving]
  - Hepatic function abnormal [Recovering/Resolving]
